FAERS Safety Report 20837158 (Version 1)
Quarter: 2022Q2

REPORT INFORMATION
  Report Type: Spontaneous
  Country: RU (occurrence: RU)
  Receive Date: 20220517
  Receipt Date: 20220517
  Transmission Date: 20220721
  Serious: Yes (Other)
  Sender: FDA-Public Use
  Company Number: RU-MLMSERVICE-20220505-3541255-1

PATIENT
  Age: 31 Year
  Sex: Male

DRUGS (13)
  1. DEXAMETHASONE [Suspect]
     Active Substance: DEXAMETHASONE
     Indication: Prophylaxis
     Dosage: PROPHYLACTIC ENDOLUMBAR INJECTIONS (UP TO 16)
     Route: 008
     Dates: end: 201802
  2. DEXAMETHASONE [Suspect]
     Active Substance: DEXAMETHASONE
     Indication: Acute lymphocytic leukaemia
     Dosage: 4 INJECTIONS PER COURSE: 4 DOSAGE FORMS)
     Route: 008
     Dates: start: 20190520, end: 2019
  3. DEXAMETHASONE [Suspect]
     Active Substance: DEXAMETHASONE
     Indication: Leukaemia
     Route: 008
     Dates: start: 20190603, end: 2019
  4. DEXAMETHASONE [Suspect]
     Active Substance: DEXAMETHASONE
     Route: 008
     Dates: start: 20190725
  5. CYTARABINE [Suspect]
     Active Substance: CYTARABINE
     Indication: Prophylaxis
     Dosage: PROPHYLACTIC ENDOLUMBAR INJECTIONS (UP TO 16)
     Route: 008
     Dates: end: 201802
  6. CYTARABINE [Suspect]
     Active Substance: CYTARABINE
     Indication: Acute lymphocytic leukaemia
     Dosage: (4 INJECTIONS PER COURSE)
     Route: 008
     Dates: start: 20190520, end: 2019
  7. CYTARABINE [Suspect]
     Active Substance: CYTARABINE
     Indication: Leukaemia
     Route: 008
     Dates: start: 20190603, end: 2019
  8. CYTARABINE [Suspect]
     Active Substance: CYTARABINE
     Route: 008
     Dates: start: 20190725
  9. METHOTREXATE [Suspect]
     Active Substance: METHOTREXATE
     Indication: Prophylaxis
     Dosage: PROPHYLACTIC ENDOLUMBAR INJECTIONS (UP TO 16)
     Route: 008
     Dates: end: 201802
  10. METHOTREXATE [Suspect]
     Active Substance: METHOTREXATE
     Indication: Acute lymphocytic leukaemia
     Dosage: (4 INJECTIONS PER COURSE)
     Route: 008
     Dates: start: 20190520, end: 2019
  11. METHOTREXATE [Suspect]
     Active Substance: METHOTREXATE
     Indication: Leukaemia
     Route: 008
     Dates: start: 20190603, end: 2019
  12. METHOTREXATE [Suspect]
     Active Substance: METHOTREXATE
     Route: 008
     Dates: start: 20190725
  13. INOTUZUMAB OZOGAMICIN [Suspect]
     Active Substance: INOTUZUMAB OZOGAMICIN
     Indication: Acute lymphocytic leukaemia recurrent
     Route: 065
     Dates: start: 2019, end: 201905

REACTIONS (4)
  - Polyneuropathy [Unknown]
  - Myelopathy [Unknown]
  - Condition aggravated [Unknown]
  - Spinal cord injury [Unknown]

NARRATIVE: CASE EVENT DATE: 20190101
